FAERS Safety Report 5191371-X (Version None)
Quarter: 2006Q4

REPORT INFORMATION
  Report Type: 
  Country: None (occurrence: None)
  Receive Date: 20061226
  Receipt Date: 20021216
  Transmission Date: 20070319
  Serious: Yes (Death, Hospitalization)
  Sender: FDA-Public Use
  Company Number: FR-MERCK-0212USA01463

PATIENT
  Age: 69 Year
  Sex: Male

DRUGS (4)
  1. MODURETIC 5-50 [Suspect]
     Route: 048
  2. DIGOXIN [Concomitant]
     Route: 065
  3. PREVISCAN [Concomitant]
     Route: 065
  4. JUSTOR [Concomitant]
     Route: 065

REACTIONS (4)
  - HYPOKALAEMIA [None]
  - SUBDURAL HAEMATOMA [None]
  - VENTRICULAR EXTRASYSTOLES [None]
  - VENTRICULAR FIBRILLATION [None]
